FAERS Safety Report 15564898 (Version 2)
Quarter: 2019Q1

REPORT INFORMATION
  Report Type: Report from Study
  Country: IT (occurrence: IT)
  Receive Date: 20181030
  Receipt Date: 20190110
  Transmission Date: 20190417
  Serious: Yes (Death)
  Sender: FDA-Public Use
  Company Number: IT-BAXTER-2018BAX026638

PATIENT
  Age: 51 Year
  Sex: Male
  Weight: 60 kg

DRUGS (7)
  1. ZARZIO [Concomitant]
     Active Substance: FILGRASTIM
     Indication: PRODUCT USED FOR UNKNOWN INDICATION
     Dosage: 30 MU/0.5 ML, SOLUTION FOR INJECTION OR INFUSION IN PRE-FILLED S
     Route: 058
     Dates: start: 20180901, end: 20180909
  2. ENDOXAN BAXTER [Suspect]
     Active Substance: CYCLOPHOSPHAMIDE
     Indication: PLASMA CELL MYELOMA
     Dosage: POWDER FOR INJECTABLE SOLUTION
     Route: 042
     Dates: start: 20180831, end: 20180901
  3. UROMITEXAN [Concomitant]
     Active Substance: MESNA
     Indication: PRODUCT USED FOR UNKNOWN INDICATION
     Dosage: 400 MG/4 ML, INJECTABLE SOLUTION FOR INTRAVENOUS USE
     Route: 040
     Dates: start: 20180831, end: 20180901
  4. ZEFFIX [Concomitant]
     Active Substance: LAMIVUDINE
     Indication: PRODUCT USED FOR UNKNOWN INDICATION
     Route: 048
     Dates: start: 20180901, end: 20180909
  5. CEFIXORAL [Concomitant]
     Active Substance: CEFIXIME
     Indication: PRODUCT USED FOR UNKNOWN INDICATION
     Route: 048
     Dates: start: 20180901, end: 20180909
  6. LAMIVUDINE. [Concomitant]
     Active Substance: LAMIVUDINE
     Indication: HEPATITIS B
     Route: 048
  7. ACICLOVIR [Concomitant]
     Active Substance: ACYCLOVIR
     Indication: PRODUCT USED FOR UNKNOWN INDICATION
     Route: 048
     Dates: start: 20180901, end: 20180909

REACTIONS (5)
  - Cardiovascular insufficiency [Fatal]
  - Neutropenia [Fatal]
  - Cardiac arrest [Fatal]
  - Hyperpyrexia [Fatal]
  - Septic shock [Fatal]

NARRATIVE: CASE EVENT DATE: 20180909
